FAERS Safety Report 22262109 (Version 1)
Quarter: 2023Q2

REPORT INFORMATION
  Report Type: Spontaneous
  Country: US (occurrence: US)
  Receive Date: 20230428
  Receipt Date: 20230428
  Transmission Date: 20230721
  Serious: No
  Sender: FDA-Public Use
  Company Number: US-OYSTER POINT PHARMA, INC-US-OYS-23-000138

PATIENT
  Age: 73 Year
  Sex: Female

DRUGS (3)
  1. TYRVAYA [Suspect]
     Active Substance: VARENICLINE TARTRATE
     Indication: Dry eye
     Dosage: UNK, BID
     Route: 045
     Dates: start: 20230121, end: 20230205
  2. TRIAMTERENE [Concomitant]
     Active Substance: TRIAMTERENE
     Indication: Hypertension
     Dosage: UNK, UNK
     Route: 065
  3. OMEPRAZOLE [Concomitant]
     Active Substance: OMEPRAZOLE
     Indication: Gastrooesophageal reflux disease
     Dosage: UNK, UNK
     Route: 065

REACTIONS (4)
  - Abnormal sensation in eye [Recovered/Resolved]
  - Burning sensation [Recovered/Resolved]
  - Paraesthesia [Recovered/Resolved]
  - Throat irritation [Recovered/Resolved]

NARRATIVE: CASE EVENT DATE: 20230121
